FAERS Safety Report 9679164 (Version 1)
Quarter: 2013Q4

REPORT INFORMATION
  Report Type: Spontaneous
  Country: CN (occurrence: None)
  Receive Date: 20131107
  Receipt Date: 20131107
  Transmission Date: 20140711
  Serious: Yes (Other)
  Sender: FDA-Public Use
  Company Number: VAL_02804_2013

PATIENT
  Age: 49 Year
  Sex: Female
  Weight: 50 kg

DRUGS (3)
  1. LOTENSIN (00909102) (LOTENSIN-BENAZEPRIL HYDROCHLORIDE) (NOT SPECIFIED) [Suspect]
     Indication: HYPERTENSION
     Route: 048
     Dates: start: 20121113, end: 20121113
  2. CALCIUM GLUCONATE [Concomitant]
  3. METHYLPREDNISOLONE [Concomitant]

REACTIONS (6)
  - Rash [None]
  - Chest discomfort [None]
  - Pruritus [None]
  - Rales [None]
  - Lip oedema [None]
  - Anaphylactoid reaction [None]
